FAERS Safety Report 8797120 (Version 1)
Quarter: 2012Q4

REPORT INFORMATION
  Report Type: 
  Country: US (occurrence: US)
  Receive Date: 20120919
  Receipt Date: 20120919
  Transmission Date: 20130627
  Serious: Yes (Hospitalization)
  Sender: FDA-Public Use
  Company Number: CHPA2012US018849

PATIENT
  Age: 44 Year
  Sex: Female

DRUGS (3)
  1. UNSPECIFIED INGREDIENT [Suspect]
     Indication: SMOKING CESSATION THERAPY
     Dosage: 21 mg, QD
     Route: 062
     Dates: start: 20120802
  2. OXYGEN [Concomitant]
     Dosage: Unk, Unk
     Dates: start: 2010
  3. DRUG THERAPY NOS [Concomitant]
     Dosage: Unk, AT NIGHT

REACTIONS (1)
  - Pneumonia [Recovered/Resolved]
